FAERS Safety Report 13148961 (Version 1)
Quarter: 2017Q1

REPORT INFORMATION
  Report Type: Spontaneous
  Country: US (occurrence: US)
  Receive Date: 20170125
  Receipt Date: 20170125
  Transmission Date: 20170428
  Serious: Yes (Other)
  Sender: FDA-Public Use
  Company Number: US-TEVA-731014USA

PATIENT
  Sex: Female
  Weight: 69.46 kg

DRUGS (3)
  1. COPAXONE [Suspect]
     Active Substance: GLATIRAMER ACETATE
  2. GLATOPA [Suspect]
     Active Substance: GLATIRAMER ACETATE
     Indication: MULTIPLE SCLEROSIS
     Dosage: 20MG INJECTED ONCE DAILY
  3. COPAXONE [Suspect]
     Active Substance: GLATIRAMER ACETATE
     Indication: MULTIPLE SCLEROSIS
     Dosage: UNKNOWN FORM STRENGTH

REACTIONS (6)
  - Neuralgia [Recovered/Resolved]
  - Cardiac flutter [Recovered/Resolved]
  - Burning sensation [Recovered/Resolved]
  - Injection site atrophy [Unknown]
  - Heart rate increased [Recovered/Resolved]
  - Drug ineffective [Unknown]
